FAERS Safety Report 9012038 (Version 2)
Quarter: 2013Q1

REPORT INFORMATION
  Report Type: Spontaneous
  Country: GB (occurrence: None)
  Receive Date: 20121228
  Receipt Date: 20130122
  Transmission Date: 20140127
  Serious: Yes (Life-Threatening, Hospitalization)
  Sender: FDA-Public Use
  Company Number: DSA_61564_2012

PATIENT
  Age: 73 Year
  Sex: Male

DRUGS (13)
  1. FLUOROURACIL [Suspect]
     Indication: COLORECTAL CANCER METASTATIC
     Route: 042
     Dates: start: 20120912, end: 20120912
  2. AFLIBERCEPT [Suspect]
     Indication: COLORECTAL CANCER
     Route: 042
     Dates: start: 20120912, end: 20120912
  3. IRINOTECAN [Suspect]
     Indication: COLORECTAL CANCER METASTATIC
     Route: 042
     Dates: start: 20120912, end: 20120912
  4. LEUCOVORIN [Suspect]
     Indication: COLORECTAL CANCER METASTATIC
     Route: 042
     Dates: start: 20120912, end: 20120912
  5. LANSOPRAZOLE [Concomitant]
  6. CO-CODAMOL [Concomitant]
  7. MOVICOL [Concomitant]
  8. LOPERAMIDE [Concomitant]
  9. RECTOGESIC [Concomitant]
  10. ANTIBIOTICS [Concomitant]
  11. LACTULOSE [Concomitant]
  12. ANUSOL [Concomitant]
  13. DOMPERIDONE [Concomitant]

REACTIONS (4)
  - Malaise [None]
  - Pleuritic pain [None]
  - Respiratory failure [None]
  - Sepsis [None]
